FAERS Safety Report 12629303 (Version 1)
Quarter: 2016Q3

REPORT INFORMATION
  Report Type: Spontaneous
  Country: US (occurrence: US)
  Receive Date: 20160808
  Receipt Date: 20160808
  Transmission Date: 20161109
  Serious: No
  Sender: FDA-Public Use
  Company Number: PHHY2016US108510

PATIENT
  Age: 17 Year
  Sex: Female

DRUGS (1)
  1. CAMBIA [Suspect]
     Active Substance: DICLOFENAC POTASSIUM
     Indication: MIGRAINE
     Dosage: UNK
     Route: 065

REACTIONS (2)
  - Product use issue [Unknown]
  - Drug prescribing error [Unknown]
